FAERS Safety Report 22244620 (Version 1)
Quarter: 2023Q2

REPORT INFORMATION
  Report Type: Spontaneous
  Country: DE (occurrence: DE)
  Receive Date: 20230424
  Receipt Date: 20230424
  Transmission Date: 20230722
  Serious: Yes (Other)
  Sender: FDA-Public Use
  Company Number: None

PATIENT
  Age: 39 Year
  Sex: Female
  Weight: 58 kg

DRUGS (2)
  1. ACYCLOVIR [Suspect]
     Active Substance: ACYCLOVIR
     Indication: Meningitis
     Dosage: 750+750+250 DAILY
     Route: 042
     Dates: start: 20230318, end: 20230327
  2. AMPICILLIN [Suspect]
     Active Substance: AMPICILLIN
     Indication: Meningitis
     Dosage: UNKNOWN
     Route: 042
     Dates: start: 20230318, end: 20230325

REACTIONS (8)
  - Insomnia [Unknown]
  - Anxiety [Recovering/Resolving]
  - Restlessness [Recovering/Resolving]
  - Paralysis [Recovering/Resolving]
  - Blood pressure increased [Recovering/Resolving]
  - Panic attack [Recovering/Resolving]
  - Tremor [Unknown]
  - Paraesthesia [Recovering/Resolving]

NARRATIVE: CASE EVENT DATE: 20230301
